FAERS Safety Report 8391003-3 (Version None)
Quarter: 2012Q2

REPORT INFORMATION
  Report Type: 
  Country: None (occurrence: None)
  Receive Date: 20120529
  Receipt Date: 20120522
  Transmission Date: 20120825
  Serious: Yes (Death)
  Sender: FDA-Public Use
  Company Number: FR-JNJFOC-20110910189

PATIENT
  Sex: Male
  Weight: 75 kg

DRUGS (26)
  1. EDUCTYL [Concomitant]
     Route: 065
     Dates: start: 20090101
  2. LEPTICUR [Concomitant]
     Route: 065
  3. ATACAND [Suspect]
     Indication: PRODUCT USED FOR UNKNOWN INDICATION
     Route: 048
     Dates: start: 20090113, end: 20110729
  4. IMOVANE [Suspect]
     Indication: PRODUCT USED FOR UNKNOWN INDICATION
     Route: 048
     Dates: start: 20041227, end: 20110729
  5. CELESTAMINE TAB [Concomitant]
     Route: 048
     Dates: start: 20100101
  6. ZOPICLONE [Concomitant]
     Route: 065
     Dates: start: 20060101
  7. X-PREP [Concomitant]
     Route: 065
     Dates: start: 20090101
  8. HALDOL [Suspect]
     Indication: PRODUCT USED FOR UNKNOWN INDICATION
     Route: 048
     Dates: start: 20041027, end: 20090716
  9. AMLODIPINE BESYLATE [Suspect]
     Indication: PRODUCT USED FOR UNKNOWN INDICATION
     Route: 048
     Dates: start: 20081230, end: 20110729
  10. LOXAPINE HCL [Suspect]
     Indication: PRODUCT USED FOR UNKNOWN INDICATION
     Dosage: 100 MG DAILY + 50 MG IF REQUIRED
     Route: 048
     Dates: start: 20081220, end: 20110729
  11. BETAHISTINE [Suspect]
     Indication: PRODUCT USED FOR UNKNOWN INDICATION
     Route: 048
     Dates: start: 20110527, end: 20110729
  12. POLYETHYLENE GLYCOL [Concomitant]
     Indication: LAXATIVE SUPPORTIVE CARE
     Route: 065
  13. SULFARLEM [Concomitant]
     Route: 065
  14. RISPERDAL CONSTA [Suspect]
     Indication: SCHIZOPHRENIA, PARANOID TYPE
     Route: 030
     Dates: start: 20100708, end: 20110722
  15. VASTAREL [Suspect]
     Indication: PRODUCT USED FOR UNKNOWN INDICATION
     Route: 048
     Dates: start: 20110527, end: 20110729
  16. ATARAX [Suspect]
     Indication: PRODUCT USED FOR UNKNOWN INDICATION
     Route: 048
     Dates: start: 20101220, end: 20110729
  17. TRIMEPRAZINE TARTRATE [Suspect]
     Indication: PRODUCT USED FOR UNKNOWN INDICATION
     Route: 048
     Dates: start: 20081220, end: 20110729
  18. NORMACOL STANDARD [Concomitant]
     Route: 065
     Dates: start: 20090101
  19. ESIDRIX [Suspect]
     Indication: PRODUCT USED FOR UNKNOWN INDICATION
     Route: 048
     Dates: start: 20090113, end: 20110729
  20. PARAFFIN [Concomitant]
     Route: 065
     Dates: start: 20090101
  21. ATACAND [Suspect]
     Route: 048
     Dates: start: 20090102, end: 20090112
  22. LOXAPINE HCL [Suspect]
     Dosage: UP TO 100 MG 6 TIME DAILY, AND 50 MG IF REQUIRED
     Route: 048
     Dates: start: 20091119
  23. LOVENOX [Concomitant]
     Route: 048
     Dates: start: 20110301
  24. LEVOTHYROXINE SODIUM [Concomitant]
     Route: 065
     Dates: start: 20040101
  25. FLUPHENAZINE DECANOATE [Concomitant]
     Route: 065
     Dates: start: 20060101
  26. LOXAPINE HCL [Suspect]
     Dosage: 150 MG DAILY + 50 MG IF REQUIRED
     Route: 048
     Dates: start: 20110301

REACTIONS (4)
  - HYPOKALAEMIA [None]
  - CARDIAC ARREST [None]
  - TORSADE DE POINTES [None]
  - ELECTROCARDIOGRAM QT PROLONGED [None]
